FAERS Safety Report 7085610-8 (Version None)
Quarter: 2010Q4

REPORT INFORMATION
  Report Type: 
  Country: None (occurrence: None)
  Receive Date: 20101027
  Receipt Date: 20101015
  Transmission Date: 20110411
  Serious: Yes (Death, Other)
  Sender: FDA-Public Use
  Company Number: APP201000862

PATIENT
  Age: 64 Year
  Sex: Male

DRUGS (8)
  1. HEPARIN SODIUM INJECTION [Suspect]
     Indication: HAEMODIALYSIS
     Dosage: INTRAVENOUS
     Route: 042
     Dates: start: 20080128, end: 20080128
  2. HEPARIN SODIUM INJECTION [Suspect]
     Indication: HAEMODIALYSIS
     Dosage: INTRAVENOUS
     Route: 042
     Dates: start: 20080129, end: 20080129
  3. HEPARIN SODIUM INJECTION [Suspect]
     Indication: HAEMODIALYSIS
     Dosage: INTRAVENOUS
     Route: 042
     Dates: start: 20080131, end: 20080131
  4. HEPARIN SODIUM INJECTION [Suspect]
     Indication: HAEMODIALYSIS
     Dosage: INTRAVENOUS
     Route: 042
     Dates: start: 20080201, end: 20080201
  5. HEPARIN SODIUM INJECTION [Suspect]
     Indication: HAEMODIALYSIS
     Dosage: INTRAVENOUS
     Route: 042
     Dates: start: 20080202, end: 20080202
  6. HEPARIN SODIUM INJECTION [Suspect]
     Indication: HAEMODIALYSIS
     Dosage: INTRAVENOUS
     Route: 042
     Dates: start: 20080205, end: 20080205
  7. HEPARIN SODIUM INJECTION [Suspect]
     Indication: HAEMODIALYSIS
     Dosage: INTRAVENOUS
     Route: 042
     Dates: start: 20080207, end: 20080207
  8. HEPARIN SODIUM INJECTION [Suspect]
     Indication: HAEMODIALYSIS
     Dosage: INTRAVENOUS
     Route: 042
     Dates: start: 20080209, end: 20080209

REACTIONS (1)
  - ADVERSE EVENT [None]
